FAERS Safety Report 9130361 (Version 2)
Quarter: 2013Q1

REPORT INFORMATION
  Report Type: Spontaneous
  Country: JP (occurrence: JP)
  Receive Date: 20130228
  Receipt Date: 20130312
  Transmission Date: 20140127
  Serious: Yes (Life-Threatening, Other)
  Sender: FDA-Public Use
  Company Number: JP-AMGEN-JPNSP2013014040

PATIENT
  Age: 64 Year
  Sex: Female

DRUGS (3)
  1. ENBREL [Suspect]
     Indication: RHEUMATOID ARTHRITIS
     Dosage: 50 MG, EVERY 2WEEKS
     Route: 058
     Dates: start: 20090729, end: 201302
  2. CELECOX [Concomitant]
     Dosage: UNK
  3. PARIET [Concomitant]
     Dosage: UNK

REACTIONS (1)
  - Uterine cancer [Not Recovered/Not Resolved]
